FAERS Safety Report 16117741 (Version 1)
Quarter: 2019Q1

REPORT INFORMATION
  Report Type: Spontaneous
  Country: US (occurrence: US)
  Receive Date: 20190326
  Receipt Date: 20190326
  Transmission Date: 20190418
  Serious: No
  Sender: FDA-Public Use
  Company Number: US-CEDIPROF, INC.-2064628

PATIENT
  Age: 56 Year
  Sex: Female

DRUGS (2)
  1. LEVO-T [Suspect]
     Active Substance: LEVOTHYROXINE SODIUM
     Indication: PRODUCT USED FOR UNKNOWN INDICATION
     Route: 065
  2. CHILDRENS ASPIRIN [Concomitant]
     Active Substance: ASPIRIN

REACTIONS (3)
  - Fungal infection [Unknown]
  - Blood glucose increased [Unknown]
  - Hypersensitivity [Unknown]
